FAERS Safety Report 7727805-3 (Version None)
Quarter: 2011Q3

REPORT INFORMATION
  Report Type: 
  Country: None (occurrence: None)
  Receive Date: 20110905
  Receipt Date: 20110824
  Transmission Date: 20111222
  Serious: Yes (Hospitalization)
  Sender: FDA-Public Use
  Company Number: US-BIOGENIDEC-2010BI038121

PATIENT
  Age: 54 Year
  Sex: Female

DRUGS (8)
  1. FEXOFENADINE [Concomitant]
     Route: 048
  2. ALENDRONATE SODIUM [Concomitant]
     Route: 048
  3. TYSABRI [Suspect]
     Indication: MULTIPLE SCLEROSIS
     Route: 042
     Dates: start: 20090716, end: 20101013
  4. CALCIUM CARBONATE [Concomitant]
     Route: 048
  5. ERGOCALCIFEROL [Concomitant]
     Route: 048
  6. VITAMIN D [Concomitant]
     Route: 048
  7. ESOMEPRAZOLE SODIUM [Concomitant]
     Route: 048
  8. IBUPROFEN [Concomitant]
     Indication: PAIN
     Route: 048

REACTIONS (14)
  - PSOAS ABSCESS [None]
  - COLITIS [None]
  - DECUBITUS ULCER [None]
  - BREAST CALCIFICATIONS [None]
  - GAIT DISTURBANCE [None]
  - PYELONEPHRITIS [None]
  - FATIGUE [None]
  - FAECALOMA [None]
  - NEUROGENIC BOWEL [None]
  - HYPOKALAEMIA [None]
  - URINARY RETENTION [None]
  - BREAST CANCER IN SITU [None]
  - CELLULITIS [None]
  - BREAST CELLULITIS [None]
